FAERS Safety Report 16956329 (Version 1)
Quarter: 2019Q4

REPORT INFORMATION
  Report Type: Spontaneous
  Country: US (occurrence: US)
  Receive Date: 20190905
  Receipt Date: 20190905
  Transmission Date: 20200122
  Serious: Yes (Hospitalization)
  Sender: FDA-Public Use
  Company Number: None

PATIENT
  Age: 89 Year
  Sex: Male

DRUGS (1)
  1. RIVAROXABAN [Suspect]
     Active Substance: RIVAROXABAN
     Indication: ATRIAL FIBRILLATION
     Route: 048
     Dates: start: 20180809, end: 20190622

REACTIONS (10)
  - Gastric haemorrhage [None]
  - Large intestine polyp [None]
  - Gastrointestinal inflammation [None]
  - Diverticulum [None]
  - Presyncope [None]
  - Haemorrhoids [None]
  - Dizziness [None]
  - Thrombosis [None]
  - Lower gastrointestinal haemorrhage [None]
  - Haemoglobin decreased [None]

NARRATIVE: CASE EVENT DATE: 20190622
